FAERS Safety Report 9218856 (Version 1)
Quarter: 2013Q2

REPORT INFORMATION
  Report Type: Spontaneous
  Country: US (occurrence: None)
  Receive Date: 20130405
  Receipt Date: 20130405
  Transmission Date: 20140414
  Serious: Yes (Life-Threatening, Hospitalization)
  Sender: FDA-Public Use
  Company Number: None

PATIENT
  Age: 78 Year
  Sex: Male
  Weight: 58.97 kg

DRUGS (10)
  1. AMANTADINE [Suspect]
     Indication: PARKINSON^S DISEASE
     Route: 048
  2. SINEMET 25/250 MG COMPRIMIDOS [Concomitant]
  3. MIRAPEX [Concomitant]
  4. SEROQUEL [Concomitant]
  5. DETROL LA [Concomitant]
  6. LASIX [Concomitant]
  7. FLOMAX [Concomitant]
  8. COREG [Concomitant]
  9. PREVACID [Concomitant]
  10. HYDRALAZINE [Concomitant]

REACTIONS (6)
  - Hallucination [None]
  - Agitation [None]
  - Insomnia [None]
  - Mental status changes [None]
  - Dehydration [None]
  - Hypertension [None]
